FAERS Safety Report 5152922-4 (Version None)
Quarter: 2006Q4

REPORT INFORMATION
  Report Type: 
  Country: None (occurrence: None)
  Receive Date: 20061114
  Receipt Date: 20061114
  Transmission Date: 20070319
  Serious: No
  Sender: FDA-Public Use
  Company Number: None

PATIENT
  Age: 1 Year
  Sex: Male

DRUGS (2)
  1. RONDEC DROPS [Suspect]
     Dosage: ORAL CARE DROPS  60ML
     Route: 048
  2. RONDEC DM SQ [Suspect]
     Dosage: ORAL SYRUP 120 ML
     Route: 048

REACTIONS (1)
  - MEDICATION ERROR [None]
